FAERS Safety Report 12543538 (Version 1)
Quarter: 2016Q3

REPORT INFORMATION
  Report Type: Spontaneous
  Country: US (occurrence: None)
  Receive Date: 20160708
  Receipt Date: 20160708
  Transmission Date: 20161109
  Serious: Yes (Disabling)
  Sender: FDA-Public Use
  Company Number: None

PATIENT
  Age: 30 Year
  Sex: Female
  Weight: 99.79 kg

DRUGS (9)
  1. BENADRYL [Concomitant]
     Active Substance: DIPHENHYDRAMINE HYDROCHLORIDE
  2. PROLIXIN [Suspect]
     Active Substance: FLUPHENAZINE HYDROCHLORIDE
     Indication: HALLUCINATION, AUDITORY
  3. APAP [Concomitant]
     Active Substance: ACETAMINOPHEN
  4. NYSTATIN CREAM [Concomitant]
     Active Substance: NYSTATIN
  5. LITHIUM. [Concomitant]
     Active Substance: LITHIUM
  6. KLONOPIN [Concomitant]
     Active Substance: CLONAZEPAM
  7. CONGENTIN [Concomitant]
  8. PROLIXIN [Suspect]
     Active Substance: FLUPHENAZINE HYDROCHLORIDE
     Indication: SCHIZOPHRENIA
  9. PROZAC [Concomitant]
     Active Substance: FLUOXETINE HYDROCHLORIDE

REACTIONS (4)
  - Pain [None]
  - Melanocytic naevus [None]
  - Acne [None]
  - Stress [None]

NARRATIVE: CASE EVENT DATE: 20160411
